FAERS Safety Report 5030982-9 (Version None)
Quarter: 2006Q2

REPORT INFORMATION
  Report Type: 
  Country: None (occurrence: None)
  Receive Date: 20060621
  Receipt Date: 20060213
  Transmission Date: 20061013
  Serious: No
  Sender: FDA-Public Use
  Company Number: US-GLAXOSMITHKLINE-A0593458A

PATIENT
  Age: 17 Year
  Sex: Female
  Weight: 64.5 kg

DRUGS (2)
  1. FLOVENT [Suspect]
     Indication: COUGH
     Dosage: 110MCG SINGLE DOSE
     Route: 055
     Dates: start: 20060214, end: 20060214
  2. MUCINEX [Concomitant]
     Dosage: 1TAB TWICE PER DAY

REACTIONS (1)
  - CHEST PAIN [None]
